FAERS Safety Report 5585347-8 (Version None)
Quarter: 2008Q1

REPORT INFORMATION
  Report Type: 
  Country: None (occurrence: None)
  Receive Date: 20080109
  Receipt Date: 20080102
  Transmission Date: 20080703
  Serious: Yes (Other)
  Sender: FDA-Public Use
  Company Number: US-ROCHE-539284

PATIENT
  Age: 61 Year
  Sex: Female

DRUGS (3)
  1. BONIVA [Suspect]
     Indication: DRUG USE FOR UNKNOWN INDICATION
     Route: 065
     Dates: start: 20071225, end: 20071225
  2. ARIMIDEX [Suspect]
     Indication: BREAST CANCER
     Route: 065
  3. VITAMINS NOS [Concomitant]

REACTIONS (1)
  - ANGIOEDEMA [None]
